FAERS Safety Report 23250818 (Version 1)
Quarter: 2023Q4

REPORT INFORMATION
  Report Type: Spontaneous
  Country: CN (occurrence: CN)
  Receive Date: 20231201
  Receipt Date: 20231201
  Transmission Date: 20240110
  Serious: Yes (Hospitalization)
  Sender: FDA-Public Use
  Company Number: CN-BAYER-2023A168049

PATIENT
  Age: 40 Year
  Sex: Female
  Weight: 45 kg

DRUGS (3)
  1. STIVARGA [Suspect]
     Active Substance: REGORAFENIB
     Indication: Neuroendocrine tumour of the rectum
     Dosage: 80 MG, QD
     Route: 048
     Dates: start: 20231019
  2. STIVARGA [Suspect]
     Active Substance: REGORAFENIB
     Indication: Pelvic neoplasm
  3. SINTILIMAB [Suspect]
     Active Substance: SINTILIMAB
     Dosage: 100 MG, QD
     Route: 041
     Dates: start: 20231019

REACTIONS (3)
  - Immune-mediated dermatitis [Recovering/Resolving]
  - Exfoliative rash [Recovering/Resolving]
  - Off label use [None]

NARRATIVE: CASE EVENT DATE: 20231019
